FAERS Safety Report 8333535-X (Version None)
Quarter: 2012Q1

REPORT INFORMATION
  Report Type: 
  Country: None (occurrence: None)
  Receive Date: 20120329
  Receipt Date: 20090723
  Transmission Date: 20120608
  Serious: Yes (Other)
  Sender: FDA-Public Use
  Company Number: PHEH2009US08110

PATIENT
  Sex: Male

DRUGS (1)
  1. EXELON [Suspect]
     Indication: DEMENTIA ALZHEIMER'S TYPE
     Dosage: 3 MG, BID, ORAL
     Route: 048
     Dates: start: 20081001, end: 20090301

REACTIONS (1)
  - SYNCOPE [None]
